FAERS Safety Report 6880788-0 (Version None)
Quarter: 2010Q3

REPORT INFORMATION
  Report Type: 
  Country: None (occurrence: None)
  Receive Date: 20100728
  Receipt Date: 20100715
  Transmission Date: 20110219
  Serious: Yes (Hospitalization)
  Sender: FDA-Public Use
  Company Number: CZ-AMGEN-US408744

PATIENT
  Sex: Male

DRUGS (7)
  1. ENBREL [Suspect]
     Indication: PSORIATIC ARTHROPATHY
     Route: 058
     Dates: start: 20071219, end: 20100330
  2. ENBREL [Suspect]
     Route: 058
     Dates: start: 20100507
  3. MILURIT [Concomitant]
     Dosage: 100 MG
     Route: 048
  4. OMEPRAZOLE [Concomitant]
     Route: 048
  5. NOVALGIN [Concomitant]
     Dosage: 1 AMP I.M.
  6. SECTRAL [Concomitant]
     Dosage: 400 MG/HALF A TABLET DAILY
     Route: 048
  7. PRESTARIUM [Concomitant]
     Dosage: ONCE A DAY
     Route: 048

REACTIONS (3)
  - ANAEMIA [None]
  - GASTRITIS EROSIVE [None]
  - RENAL FAILURE [None]
